FAERS Safety Report 7130490-5 (Version None)
Quarter: 2010Q4

REPORT INFORMATION
  Report Type: 
  Country: None (occurrence: None)
  Receive Date: 20101201
  Receipt Date: 20101124
  Transmission Date: 20110411
  Serious: Yes (Other)
  Sender: FDA-Public Use
  Company Number: JP-SANOFI-AVENTIS-2010SA035031

PATIENT
  Age: 35 Year
  Sex: Male
  Weight: 69.3 kg

DRUGS (3)
  1. ITANGO PEN [Suspect]
     Dates: start: 20100101
  2. LANTUS [Suspect]
     Indication: TYPE 1 DIABETES MELLITUS
     Dosage: DOSE:10 UNIT(S)
     Route: 058
     Dates: start: 20040510
  3. NOVORAPID [Concomitant]
     Indication: TYPE 1 DIABETES MELLITUS
     Dosage: 10-8-10 UNITS/DAY
     Route: 058
     Dates: start: 20040510

REACTIONS (4)
  - BLOOD GLUCOSE INCREASED [None]
  - DEVICE LEAKAGE [None]
  - KETOSIS [None]
  - NAUSEA [None]
